FAERS Safety Report 4518510-5 (Version None)
Quarter: 2004Q4

REPORT INFORMATION
  Report Type: 
  Country: None (occurrence: None)
  Receive Date: 20041203
  Receipt Date: 20041129
  Transmission Date: 20050328
  Serious: Yes (Other)
  Sender: FDA-Public Use
  Company Number: GB-MERCK-0411GBR00270

PATIENT
  Age: 50 Year
  Sex: Female
  Weight: 57 kg

DRUGS (11)
  1. VIOXX [Suspect]
     Indication: BACK PAIN
     Route: 048
     Dates: start: 20030903, end: 20030924
  2. VIOXX [Suspect]
     Route: 048
     Dates: start: 20030925, end: 20041001
  3. VIOXX [Suspect]
     Indication: ARTHRALGIA
     Route: 048
     Dates: start: 20030903, end: 20030924
  4. VIOXX [Suspect]
     Route: 048
     Dates: start: 20030925, end: 20041001
  5. ZOPICLONE [Concomitant]
     Indication: INSOMNIA
     Route: 048
     Dates: start: 19940826
  6. PSYLLIUM HUSK [Concomitant]
     Indication: CONSTIPATION
     Route: 048
     Dates: start: 19930127
  7. IBUPROFEN [Concomitant]
     Indication: ARTHRALGIA
     Route: 061
     Dates: start: 20000622
  8. ESTRADIOL [Concomitant]
     Indication: OESTROGEN DEFICIENCY
     Route: 067
     Dates: start: 19990929
  9. DYDROGESTERONE AND ESTRADIOL [Concomitant]
     Indication: OESTROGEN DEFICIENCY
     Route: 048
     Dates: start: 19980717
  10. AMITRIPTYLINE HYDROCHLORIDE [Concomitant]
     Indication: DEPRESSION
     Route: 048
     Dates: start: 19930402
  11. AMITRIPTYLINE HYDROCHLORIDE [Concomitant]
     Indication: PAIN
     Route: 048
     Dates: start: 19930402

REACTIONS (1)
  - MEMORY IMPAIRMENT [None]
